FAERS Safety Report 25102792 (Version 1)
Quarter: 2025Q1

REPORT INFORMATION
  Report Type: Spontaneous
  Country: US (occurrence: US)
  Receive Date: 20250321
  Receipt Date: 20250321
  Transmission Date: 20250409
  Serious: Yes (Other)
  Sender: BRISTOL-MYERS SQUIBB COMPANY
  Company Number: US-BRISTOL-MYERS SQUIBB COMPANY-2025-040016

PATIENT
  Age: 80 Year
  Sex: Male

DRUGS (3)
  1. ELIQUIS [Suspect]
     Active Substance: APIXABAN
     Indication: Product used for unknown indication
  2. DUPIXENT [Suspect]
     Active Substance: DUPILUMAB
     Indication: Dermatitis atopic
     Dosage: STRENGTH: 300 MG/2ML
     Route: 058
     Dates: start: 20240818
  3. DUPIXENT [Suspect]
     Active Substance: DUPILUMAB
     Dosage: DOSAGE 300 MG QOW
     Route: 058
     Dates: start: 202409

REACTIONS (11)
  - Eye pruritus [Unknown]
  - Lacrimation increased [Unknown]
  - Eye pain [Unknown]
  - Head and neck cancer [Unknown]
  - Contusion [Unknown]
  - Cardiac ventricular thrombosis [Unknown]
  - Monoparesis [Unknown]
  - Dermatitis atopic [Unknown]
  - Pruritus [Unknown]
  - Ocular rosacea [Unknown]
  - Eczema [Unknown]

NARRATIVE: CASE EVENT DATE: 20240101
